FAERS Safety Report 8631845 (Version 3)
Quarter: 2013Q3

REPORT INFORMATION
  Report Type: Spontaneous
  Country: FR (occurrence: FR)
  Receive Date: 20120625
  Receipt Date: 20130813
  Transmission Date: 20140515
  Serious: Yes (Hospitalization, Other)
  Sender: FDA-Public Use
  Company Number: FR-JNJFOC-20120607604

PATIENT
  Age: 32 Year
  Sex: Female

DRUGS (4)
  1. REMICADE [Suspect]
     Indication: INTESTINAL RESECTION
     Dosage: FOURTH INFUSION
     Route: 042
     Dates: start: 201204
  2. REMICADE [Suspect]
     Indication: INTESTINAL RESECTION
     Route: 042
     Dates: start: 201201
  3. REMICADE [Suspect]
     Indication: CROHN^S DISEASE
     Dosage: FOURTH INFUSION
     Route: 042
     Dates: start: 201204
  4. REMICADE [Suspect]
     Indication: CROHN^S DISEASE
     Route: 042
     Dates: start: 201201

REACTIONS (3)
  - Cerebral vasoconstriction [Recovered/Resolved]
  - Disorientation [Unknown]
  - Fatigue [Unknown]
